FAERS Safety Report 23569890 (Version 1)
Quarter: 2024Q1

REPORT INFORMATION
  Report Type: Spontaneous
  Country: US (occurrence: None)
  Receive Date: 20240226
  Receipt Date: 20240226
  Transmission Date: 20240409
  Serious: Yes (Hospitalization, Disabling)
  Sender: FDA-Public Use
  Company Number: None

PATIENT
  Age: 80 Year
  Sex: Female
  Weight: 74.25 kg

DRUGS (1)
  1. ABILIFY [Suspect]
     Active Substance: ARIPIPRAZOLE
     Indication: Bipolar disorder
     Dosage: ORAL
     Route: 048
     Dates: start: 20180201, end: 20190201

REACTIONS (5)
  - Parkinsonism [None]
  - Gait inability [None]
  - Fall [None]
  - Speech disorder [None]
  - Impaired quality of life [None]

NARRATIVE: CASE EVENT DATE: 20180201
